FAERS Safety Report 17859521 (Version 1)
Quarter: 2020Q2

REPORT INFORMATION
  Report Type: Spontaneous
  Country: GB (occurrence: GB)
  Receive Date: 20200604
  Receipt Date: 20200604
  Transmission Date: 20200714
  Serious: Yes (Other)
  Sender: FDA-Public Use
  Company Number: GB-TEVA-2020-GB-1243799

PATIENT
  Age: 37 Year
  Sex: Female
  Weight: 69 kg

DRUGS (4)
  1. FEXOFENADINE HYDROCHLORIDE. [Concomitant]
     Active Substance: FEXOFENADINE HYDROCHLORIDE
  2. PREDNISOLONE. [Suspect]
     Active Substance: PREDNISOLONE
     Indication: SARCOIDOSIS
     Dosage: 30 MG
  3. RANITIDINE. [Concomitant]
     Active Substance: RANITIDINE
  4. LEVOTHYROXINE. [Concomitant]
     Active Substance: LEVOTHYROXINE

REACTIONS (6)
  - Hirsutism [Unknown]
  - Cushing^s syndrome [Recovering/Resolving]
  - Abnormal weight gain [Unknown]
  - Fatigue [Unknown]
  - Feeling abnormal [Unknown]
  - Cushingoid [Unknown]

NARRATIVE: CASE EVENT DATE: 20200401
